FAERS Safety Report 10900565 (Version 1)
Quarter: 2015Q1

REPORT INFORMATION
  Report Type: Spontaneous
  Country: JP (occurrence: None)
  Receive Date: 20150303
  Receipt Date: 20150303
  Transmission Date: 20150721
  Serious: Yes (Hospitalization)
  Sender: FDA-Public Use
  Company Number: FK201500968

PATIENT
  Age: 60 Year
  Sex: Male

DRUGS (2)
  1. GIMERACIL/OTERACIL/TEGAFUR [Suspect]
     Active Substance: GIMERACIL\OTERACIL\TEGAFUR
     Indication: GASTRIC CANCER STAGE IV
  2. CISPLATIN (MANUFACTURER UNKNOWN) (CISPLATIN) (CISPLATIN) [Suspect]
     Active Substance: CISPLATIN
     Indication: GASTRIC CANCER STAGE IV

REACTIONS (2)
  - Gastric perforation [None]
  - Abdominal pain [None]
